FAERS Safety Report 8983092 (Version 1)
Quarter: 2012Q4

REPORT INFORMATION
  Report Type: Report from Study
  Country: FR (occurrence: FR)
  Receive Date: 20121224
  Receipt Date: 20121224
  Transmission Date: 20130627
  Serious: Yes (Hospitalization, Other)
  Sender: FDA-Public Use
  Company Number: FR-009507513-1212FRA004888

PATIENT
  Age: 31 Year
  Sex: Male
  Weight: 41 kg

DRUGS (29)
  1. ISENTRESS [Suspect]
     Indication: HIV INFECTION
     Dosage: 400 mg, bid
     Route: 048
     Dates: start: 20081007
  2. EPIVIR [Suspect]
     Indication: HIV INFECTION
     Dosage: 150 mg, qd
     Route: 048
     Dates: start: 20090208
  3. STUDY DRUG (UNSPECIFIED) [Suspect]
     Indication: HIV INFECTION
     Dosage: 90 mg, UNK
     Route: 058
     Dates: start: 20080709
  4. STUDY DRUG (UNSPECIFIED) [Suspect]
     Dosage: 90 mg, UNK
     Route: 058
     Dates: start: 20090108
  5. KALETRA [Suspect]
     Indication: HIV INFECTION
     Dosage: UNK
     Dates: start: 20080709
  6. ZIAGEN [Suspect]
     Indication: HIV INFECTION
     Dosage: 600 mg, UNK
     Dates: start: 20090208
  7. BACTRIM [Concomitant]
     Indication: PROPHYLAXIS
  8. STILNOX [Concomitant]
     Dosage: UNK
     Dates: start: 200806
  9. ACUPAN [Concomitant]
     Indication: PAIN
     Dosage: 150 mg, UNK
     Dates: start: 200806
  10. ACUPAN [Concomitant]
     Dosage: 80 mg, UNK
     Dates: start: 20090218
  11. ANSATIPINE [Concomitant]
     Indication: MYCOBACTERIUM AVIUM COMPLEX INFECTION
     Dosage: 300 mg, UNK
     Dates: start: 20080703
  12. MYAMBUTOL [Concomitant]
     Indication: MYCOBACTERIUM AVIUM COMPLEX INFECTION
     Dosage: 400 mg, qd
     Dates: start: 20080703
  13. ZECLAR [Concomitant]
     Indication: MYCOBACTERIUM AVIUM COMPLEX INFECTION
     Dosage: UNK
     Dates: start: 20080703
  14. DOLIPRANE [Concomitant]
     Dosage: 3 g, qd
     Dates: start: 20080703
  15. FOLINORAL [Concomitant]
     Dosage: 1 IU, UNK
     Dates: start: 20080704
  16. ROVALCYTE [Concomitant]
     Dosage: 450 mg, UNK
     Dates: start: 20080705
  17. DILTIAZEM HYDROCHLORIDE [Concomitant]
     Dosage: 50 mg, UNK
     Dates: start: 20080715
  18. METOCLOPRAMIDE [Concomitant]
     Indication: NAUSEA
     Dosage: 30 mg, UNK
     Dates: start: 20080717
  19. METOCLOPRAMIDE [Concomitant]
     Dosage: 40 mg, UNK
     Dates: start: 20090218
  20. PERFALGAN [Concomitant]
     Indication: PAIN
     Dosage: 4 g, qd
     Dates: start: 20090218
  21. OFLOCET (OFLOXACIN HYDROCHLORIDE) [Concomitant]
     Indication: MYCOBACTERIUM AVIUM COMPLEX INFECTION
     Dosage: 200 mg, UNK
     Dates: start: 20081010
  22. SPASFON [Concomitant]
     Indication: PAIN
     Dosage: 240 mg, UNK
     Dates: start: 20090218
  23. OMEPRAZOLE [Concomitant]
     Indication: DYSPEPSIA
     Dosage: 80 mg, UNK
     Dates: start: 20081227
  24. PHOSPHONEUROS [Concomitant]
     Indication: RENAL TUBULAR DISORDER
     Dosage: UNK
     Dates: start: 20090105
  25. LEDERFOLINE [Concomitant]
     Indication: ANAEMIA
     Dosage: 5 mg, UNK
     Dates: start: 20080704
  26. OLICLINOMEL [Concomitant]
     Indication: PARENTERAL NUTRITION
     Dosage: UNK
     Route: 051
     Dates: start: 20090102
  27. TRUVADA [Concomitant]
     Indication: HIV INFECTION
     Dosage: UNK
     Dates: start: 20080707
  28. TRUVADA [Concomitant]
     Dosage: UNK
     Dates: start: 200810
  29. SUSTIVA [Concomitant]
     Indication: HIV INFECTION
     Dosage: UNK
     Dates: start: 200810

REACTIONS (4)
  - Atypical mycobacterium test positive [Unknown]
  - Oesophageal candidiasis [Recovered/Resolved with Sequelae]
  - Renal failure [Recovered/Resolved with Sequelae]
  - Immune reconstitution inflammatory syndrome [Recovered/Resolved with Sequelae]
